FAERS Safety Report 8155277-6 (Version None)
Quarter: 2012Q1

REPORT INFORMATION
  Report Type: 
  Country: None (occurrence: None)
  Receive Date: 20120222
  Receipt Date: 20120213
  Transmission Date: 20120608
  Serious: No
  Sender: FDA-Public Use
  Company Number: US-BIOGENIDEC-2012BI005714

PATIENT
  Sex: Female

DRUGS (1)
  1. TYSABRI [Suspect]
     Indication: MULTIPLE SCLEROSIS
     Route: 042
     Dates: start: 20110504

REACTIONS (6)
  - MOOD ALTERED [None]
  - HERPES ZOSTER [None]
  - ORAL HERPES [None]
  - STRESS [None]
  - FUNGAL INFECTION [None]
  - SINUSITIS [None]
